FAERS Safety Report 12563000 (Version 1)
Quarter: 2016Q3

REPORT INFORMATION
  Report Type: Not Available
  Country: US (occurrence: US)
  Receive Date: 20160715
  Receipt Date: 20160715
  Transmission Date: 20161109
  Serious: No
  Sender: FDA-Public Use
  Company Number: US-ANIPHARMA-2015-US-001105

PATIENT
  Age: 41 Year
  Sex: Male
  Weight: 58.97 kg

DRUGS (2)
  1. METOCLOPRAMIDE ORAL SOLUTION 16 OZ [Suspect]
     Active Substance: METOCLOPRAMIDE
     Dosage: 1 TO 6 ML THREE TIMES DAILY
     Route: 048
     Dates: start: 20150623, end: 20150625
  2. VITAMIN D [Concomitant]
     Active Substance: CHOLECALCIFEROL
     Dosage: UNKNOWN
     Route: 065

REACTIONS (2)
  - Fatigue [Unknown]
  - Somnolence [Unknown]

NARRATIVE: CASE EVENT DATE: 20150623
